FAERS Safety Report 6198295-X (Version None)
Quarter: 2009Q2

REPORT INFORMATION
  Report Type: 
  Country: None (occurrence: None)
  Receive Date: 20090519
  Receipt Date: 20090508
  Transmission Date: 20091009
  Serious: Yes (Other)
  Sender: FDA-Public Use
  Company Number: GXKR2009GB05611

PATIENT
  Age: 65 Year
  Sex: Female
  Weight: 66.4 kg

DRUGS (7)
  1. AMLODIPINE [Suspect]
     Indication: BLOOD PRESSURE
     Dosage: 5 MG, QD, ORAL
     Route: 048
  2. OMEPRAZOLE [Suspect]
     Indication: HIATUS HERNIA
     Dosage: 20 MG, QD, ORAL
     Route: 048
  3. FLUTICASONE PROPIONATE W/SALMETEROL XINAFOATE [Suspect]
     Indication: ASTHMA
     Dosage: 2 DF, BID, INHALATION
     Route: 055
     Dates: start: 20040101
  4. SINGULAIR [Suspect]
     Indication: ASTHMA
     Dosage: 10 MG, QD, ORAL
     Route: 048
  5. VENTOLIN [Suspect]
     Indication: ASTHMA
     Dosage: 100 UG, PRN, INHALATION
     Route: 055
  6. DIHYDROCODEINE BITARTRATE INJ [Concomitant]
  7. TRIAMCINOLONE [Concomitant]

REACTIONS (3)
  - ASTHMA [None]
  - CONDITION AGGRAVATED [None]
  - RHINITIS [None]
